FAERS Safety Report 4675629-6 (Version None)
Quarter: 2005Q2

REPORT INFORMATION
  Report Type: 
  Country: None (occurrence: None)
  Receive Date: 20050525
  Receipt Date: 20050513
  Transmission Date: 20051028
  Serious: Yes (Other)
  Sender: FDA-Public Use
  Company Number: SUS1-2005-00417

PATIENT
  Age: 15 Year
  Sex: Male

DRUGS (2)
  1. PENTASA [Suspect]
     Indication: CROHN'S DISEASE
     Dosage: 3 G, DAILY, ORAL
     Route: 048
     Dates: start: 20020201
  2. AZATHIOPRINE [Concomitant]

REACTIONS (1)
  - LYMPHOPENIA [None]
